FAERS Safety Report 9719358 (Version 1)
Quarter: 2013Q4

REPORT INFORMATION
  Report Type: Spontaneous
  Country: BR (occurrence: BR)
  Receive Date: 20131127
  Receipt Date: 20131127
  Transmission Date: 20140711
  Serious: Yes (Hospitalization, Other)
  Sender: FDA-Public Use
  Company Number: BR-AMGEN-BRASP2013083727

PATIENT
  Age: 71 Year
  Sex: Male
  Weight: 113 kg

DRUGS (8)
  1. ENBREL [Suspect]
     Indication: RHEUMATOID ARTHRITIS
     Dosage: 50 MG, ONCE WEEKLY
     Route: 058
     Dates: end: 201308
  2. SIMVASTATIN [Concomitant]
     Dosage: 1 CAPSULE OR TABLET OF STRENGTH 20 MG, DAILY
  3. CILOSTAZOL [Concomitant]
     Dosage: 2 TABLETS OF STRENGTH 50 MG (100 MG), DAILY
  4. METHOTREXATE [Concomitant]
     Dosage: 2 TABLETS, DAILY
  5. CAPTOPRIL [Concomitant]
     Dosage: 2 TABLETS OF STRENGTH 25 MG (50 MG), DAILY
  6. FUROSEMIDE [Concomitant]
     Dosage: 1 TABLET OF STRENGTH 40 MG, DAILY
  7. OMEPRAZOLE [Concomitant]
     Dosage: 1 TABLET OF STRENGTH 20 MG, DAILY
  8. AAS [Concomitant]
     Dosage: 1 TABLET OF STRENGTH 100 MG, DAILY

REACTIONS (8)
  - Pulmonary oedema [Unknown]
  - Cardiac disorder [Unknown]
  - Abasia [Not Recovered/Not Resolved]
  - Angiopathy [Unknown]
  - Renal cyst [Not Recovered/Not Resolved]
  - Rheumatoid factor increased [Unknown]
  - H1N1 influenza [Unknown]
  - Pneumonia [Unknown]
